FAERS Safety Report 5400568-2 (Version None)
Quarter: 2007Q3

REPORT INFORMATION
  Report Type: 
  Country: None (occurrence: None)
  Receive Date: 20070730
  Receipt Date: 20070723
  Transmission Date: 20080115
  Serious: Yes (Other)
  Sender: FDA-Public Use
  Company Number: CA-ASTRAZENECA-2007UW11265

PATIENT
  Age: 28080 Day
  Sex: Male
  Weight: 106.4 kg

DRUGS (4)
  1. ZOLADEX [Suspect]
     Indication: PROSTATE CANCER
     Route: 058
     Dates: start: 20061103
  2. CASODEX [Concomitant]
     Route: 048
     Dates: start: 20061027, end: 20061126
  3. CASODEX [Concomitant]
     Route: 048
     Dates: start: 20070515
  4. CRESTOR [Concomitant]
     Route: 048
     Dates: start: 20050928

REACTIONS (2)
  - DRUG INEFFECTIVE [None]
  - PROSTATIC SPECIFIC ANTIGEN INCREASED [None]
